FAERS Safety Report 24190051 (Version 2)
Quarter: 2024Q3

REPORT INFORMATION
  Report Type: Report from Study
  Country: DE (occurrence: DE)
  Receive Date: 20240808
  Receipt Date: 20240820
  Transmission Date: 20241017
  Serious: Yes (Death, Hospitalization, Other)
  Sender: BRISTOL MYERS SQUIBB
  Company Number: DE-BRISTOL-MYERS SQUIBB COMPANY-2024-121918

PATIENT
  Age: 55 Year
  Sex: Male
  Weight: 47.8 kg

DRUGS (4)
  1. OPDIVO [Suspect]
     Active Substance: NIVOLUMAB
     Indication: Gastric cancer
     Route: 042
     Dates: start: 20240313, end: 20240710
  2. OXALIPLATIN [Suspect]
     Active Substance: OXALIPLATIN
     Indication: Gastric cancer
     Route: 042
     Dates: start: 20240313, end: 20240710
  3. FLUOROURACIL [Suspect]
     Active Substance: FLUOROURACIL
     Indication: Gastric cancer
     Route: 042
     Dates: start: 20240313, end: 20240710
  4. ENOXAPARIN SODIUM [Concomitant]
     Active Substance: ENOXAPARIN SODIUM
     Indication: Product used for unknown indication
     Route: 058
     Dates: start: 20240722, end: 20240725

REACTIONS (6)
  - Acute respiratory distress syndrome [Unknown]
  - Rash pruritic [Unknown]
  - Immune-mediated lung disease [Fatal]
  - Agitation [Unknown]
  - Fear of death [Unknown]
  - Restlessness [Unknown]

NARRATIVE: CASE EVENT DATE: 20240722
